FAERS Safety Report 4304320-0 (Version None)
Quarter: 2004Q1

REPORT INFORMATION
  Report Type: 
  Country: None (occurrence: None)
  Receive Date: 20040224
  Receipt Date: 20040213
  Transmission Date: 20041129
  Serious: Yes (Hospitalization)
  Sender: FDA-Public Use
  Company Number: US-JNJFOC-20040203354

PATIENT
  Age: 52 Year
  Sex: Female
  Weight: 63.05 kg

DRUGS (3)
  1. REMICADE [Suspect]
     Indication: RHEUMATOID ARTHRITIS
     Dosage: 2.5 VIALS
     Dates: start: 20031228
  2. ARAVA [Concomitant]
  3. PREDNISONE [Concomitant]

REACTIONS (4)
  - CELLULITIS [None]
  - HEART RATE INCREASED [None]
  - INFUSION RELATED REACTION [None]
  - PAIN [None]
